FAERS Safety Report 7511163-3 (Version None)
Quarter: 2011Q2

REPORT INFORMATION
  Report Type: 
  Country: None (occurrence: None)
  Receive Date: 20110531
  Receipt Date: 20090914
  Transmission Date: 20111010
  Serious: Yes (Death, Other)
  Sender: FDA-Public Use
  Company Number: US-BAYER-200932976NA

PATIENT
  Age: 56 Year
  Sex: Male
  Weight: 98 kg

DRUGS (20)
  1. TRASYLOL [Suspect]
     Indication: CORONARY ARTERY BYPASS
     Dosage: 200 MG GIVEN THEN 25 CC PER HOUR
     Route: 042
     Dates: start: 20070828, end: 20070828
  2. IBUPROFEN [Concomitant]
     Dosage: 600 MG, TID
     Route: 048
  3. MOBIC [Concomitant]
  4. ACETYLSALICYLIC ACID SRT [Concomitant]
     Dosage: 81 MG
     Route: 048
  5. LIPITOR [Concomitant]
     Dosage: 20 MG, QD
     Route: 048
     Dates: start: 20070605
  6. VERSED [Concomitant]
     Dosage: 50 MG
     Route: 042
     Dates: start: 20070828, end: 20070828
  7. ANCEF [Concomitant]
     Dosage: 2 GRAMS
     Route: 042
     Dates: start: 20070828, end: 20070828
  8. FENTANYL [Concomitant]
     Dosage: 45 MCG
     Route: 042
     Dates: start: 20070828, end: 20070828
  9. VOLTAREN [Concomitant]
  10. LISINOPRIL [Concomitant]
     Dosage: 5 MG, QD
     Route: 048
  11. ULTRACET [Concomitant]
     Route: 048
  12. ALTACE [Concomitant]
  13. HEPARIN [Concomitant]
     Dosage: UNK
     Route: 042
     Dates: start: 20070828, end: 20070828
  14. HUMALOG [Concomitant]
     Dosage: 5 UNITS BEFORE MEALS
     Route: 058
  15. NITROGLYCERIN [Concomitant]
     Dosage: TITRATED
     Route: 042
     Dates: start: 20070828, end: 20070828
  16. VIOXX [Concomitant]
  17. METOPROLOL TARTRATE [Concomitant]
     Dosage: UNK
     Route: 042
     Dates: start: 20070828, end: 20070828
  18. CELEBREX [Concomitant]
  19. LANTUS [Concomitant]
     Dosage: 38 UNITS
     Route: 058
  20. DOBUTREX [Concomitant]
     Dosage: 5 MCG/MIN/KG
     Route: 042
     Dates: start: 20070828

REACTIONS (14)
  - RENAL FAILURE [None]
  - ANHEDONIA [None]
  - DEATH [None]
  - DEPRESSION [None]
  - FEAR [None]
  - MULTI-ORGAN FAILURE [None]
  - UNEVALUABLE EVENT [None]
  - RENAL INJURY [None]
  - ANXIETY [None]
  - EMOTIONAL DISTRESS [None]
  - STRESS [None]
  - RENAL IMPAIRMENT [None]
  - PAIN [None]
  - INJURY [None]
